FAERS Safety Report 7006562-2 (Version None)
Quarter: 2010Q3

REPORT INFORMATION
  Report Type: 
  Country: None (occurrence: None)
  Receive Date: 20100921
  Receipt Date: 20090403
  Transmission Date: 20110219
  Serious: Yes (Other)
  Sender: FDA-Public Use
  Company Number: US-WYE-H08727709

PATIENT
  Age: 53 Year
  Sex: Male
  Weight: 106 kg

DRUGS (7)
  1. BENEFIX [Suspect]
     Indication: FACTOR IX DEFICIENCY
     Route: 042
     Dates: end: 20090304
  2. TRUVADA [Concomitant]
  3. CYMBALTA [Concomitant]
  4. HYDROCHLOROTHIAZIDE [Concomitant]
  5. LYRICA [Concomitant]
  6. VIRAMUNE [Concomitant]
  7. AVINZA [Concomitant]

REACTIONS (4)
  - ERYTHEMA [None]
  - RASH GENERALISED [None]
  - RASH PRURITIC [None]
  - URTICARIA [None]
